FAERS Safety Report 25273819 (Version 1)
Quarter: 2025Q2

REPORT INFORMATION
  Report Type: Spontaneous
  Country: US (occurrence: None)
  Receive Date: 20250506
  Receipt Date: 20250506
  Transmission Date: 20250716
  Serious: Yes (Hospitalization)
  Sender: FDA-CTU
  Company Number: None

PATIENT
  Age: 43 Year
  Sex: Male
  Weight: 51 kg

DRUGS (2)
  1. FLUOROURACIL [Suspect]
     Active Substance: FLUOROURACIL
  2. XELODA [Suspect]
     Active Substance: CAPECITABINE

REACTIONS (1)
  - Rectal haemorrhage [None]

NARRATIVE: CASE EVENT DATE: 20250425
